FAERS Safety Report 8476377-7 (Version None)
Quarter: 2012Q2

REPORT INFORMATION
  Report Type: 
  Country: None (occurrence: None)
  Receive Date: 20120628
  Receipt Date: 20120625
  Transmission Date: 20120825
  Serious: Yes (Death, Hospitalization)
  Sender: FDA-Public Use
  Company Number: US-CELGENEUS-163-21880-12063379

PATIENT
  Age: 58 Year
  Sex: Male

DRUGS (4)
  1. REVLIMID [Suspect]
     Route: 048
  2. VIDAZA [Suspect]
     Route: 065
  3. LIPITOR [Concomitant]
     Route: 065
  4. REVLIMID [Suspect]
     Route: 048

REACTIONS (4)
  - DEATH [None]
  - DYSPEPSIA [None]
  - MOUTH ULCERATION [None]
  - GASTROINTESTINAL ULCER [None]
